FAERS Safety Report 15898455 (Version 1)
Quarter: 2019Q1

REPORT INFORMATION
  Report Type: Report from Study
  Country: BE (occurrence: BE)
  Receive Date: 20190201
  Receipt Date: 20190201
  Transmission Date: 20190417
  Serious: Yes (Hospitalization, Other)
  Sender: FDA-Public Use
  Company Number: BE-ACCORD-104497

PATIENT
  Age: 48 Year
  Sex: Male
  Weight: 92 kg

DRUGS (16)
  1. CYTARABINE/CYTARABINE HYDROCHLORIDE/CYTARABINE OCFOSFATE [Suspect]
     Active Substance: CYTARABINE
     Indication: ACUTE LYMPHOCYTIC LEUKAEMIA
     Dosage: REGIMEN 3 FROM 09-JUN-2016 TO 09-JUN-2016
     Dates: start: 20160419, end: 20160419
  2. FOLINIC ACID [Suspect]
     Active Substance: LEUCOVORIN
     Indication: ACUTE LYMPHOCYTIC LEUKAEMIA
     Dosage: REGIMEN 3 FROM 09-JUN-2016 TO 09-JUN-2016
     Dates: start: 20160419, end: 20160419
  3. DOXORUBICIN [Suspect]
     Active Substance: DOXORUBICIN
     Indication: ACUTE LYMPHOCYTIC LEUKAEMIA
     Dosage: REGIMEN 3 FROM 09-JUN-2016 TO 09-JUN-2016
     Dates: start: 20160419, end: 20160419
  4. METHOTREXATE. [Suspect]
     Active Substance: METHOTREXATE
     Indication: ACUTE LYMPHOCYTIC LEUKAEMIA
     Dosage: REGIMEN 3:09-JUN-2016 TO 09-JUN-2016
     Dates: start: 20160419, end: 20160419
  5. ACICLOVIR [Concomitant]
     Active Substance: ACYCLOVIR
     Dosage: UNK
     Dates: end: 20161107
  6. VINCRISTINE [Suspect]
     Active Substance: VINCRISTINE
     Indication: ACUTE LYMPHOCYTIC LEUKAEMIA
     Dosage: REGIMEN 3 FROM 09-JUN-2016 TO 09-JUN-2016
     Dates: start: 20160419, end: 20160419
  7. ICLUSIG [Suspect]
     Active Substance: PONATINIB
     Indication: ACUTE LYMPHOCYTIC LEUKAEMIA
     Dosage: 45 MG, 1X/DAY
     Route: 048
     Dates: start: 20160426
  8. CALCIUM CARBONATE. [Concomitant]
     Active Substance: CALCIUM CARBONATE
  9. NEULASTA [Suspect]
     Active Substance: PEGFILGRASTIM
     Indication: PRODUCT USED FOR UNKNOWN INDICATION
     Dosage: 6 MG, 1X/DAY (6 MG/0.6 ML)
     Dates: start: 20160529, end: 20161107
  10. METOCLOPRAMIDE. [Concomitant]
     Active Substance: METOCLOPRAMIDE
     Dates: end: 20161107
  11. RANITIDINE. [Concomitant]
     Active Substance: RANITIDINE
     Dates: start: 20160412, end: 20161107
  12. DEXAMETHASONE. [Suspect]
     Active Substance: DEXAMETHASONE
     Indication: PRODUCT USED FOR UNKNOWN INDICATION
     Dosage: REGIMEN3:09-JUN-2016 TO 09-JUN-2016
     Dates: start: 20160419, end: 20160419
  13. METHYLPREDNISOLONE. [Suspect]
     Active Substance: METHYLPREDNISOLONE
     Indication: ACUTE LYMPHOCYTIC LEUKAEMIA
     Dosage: REGIMEN 3 FROM 09-JUN-2016 TO 09-JUN-2016
     Dates: start: 20160419, end: 20160419
  14. CYCLOPHOSPHAMIDE. [Suspect]
     Active Substance: CYCLOPHOSPHAMIDE
     Indication: ACUTE LYMPHOCYTIC LEUKAEMIA
     Dosage: REGIMEN 3 FROM 09-JUN-2016 TO 09-JUN-2016
     Dates: start: 20160419, end: 20160419
  15. CIALIS [Concomitant]
     Active Substance: TADALAFIL
     Dates: start: 20160412, end: 20161107
  16. PENTACARINAT [Concomitant]
     Active Substance: PENTAMIDINE ISETHIONATE
     Dates: end: 20160519

REACTIONS (10)
  - Muscular weakness [Unknown]
  - Haematopoietic stem cell mobilisation [Unknown]
  - Inflammation [Recovered/Resolved]
  - Osteomyelitis [Unknown]
  - Neutropenia [Recovered/Resolved]
  - Oesophagitis [Unknown]
  - Nasal congestion [Unknown]
  - Chills [Unknown]
  - Tongue disorder [Unknown]
  - Pyrexia [Recovered/Resolved]

NARRATIVE: CASE EVENT DATE: 20160614
